FAERS Safety Report 5755877-4 (Version None)
Quarter: 2008Q2

REPORT INFORMATION
  Report Type: 
  Country: None (occurrence: None)
  Receive Date: 20080602
  Receipt Date: 20080530
  Transmission Date: 20081010
  Serious: Yes (Hospitalization)
  Sender: FDA-Public Use
  Company Number: A0730486A

PATIENT
  Age: 40 Year
  Sex: Female

DRUGS (3)
  1. ALLI [Suspect]
     Dates: start: 20080120, end: 20080201
  2. PRILOSEC [Suspect]
  3. NABUMETONE [Concomitant]

REACTIONS (13)
  - BACK PAIN [None]
  - CHEST PAIN [None]
  - CHOLELITHIASIS [None]
  - DRUG INEFFECTIVE [None]
  - DYSPEPSIA [None]
  - DYSPNOEA [None]
  - GASTROOESOPHAGEAL REFLUX DISEASE [None]
  - HEART RATE INCREASED [None]
  - HYPOVENTILATION [None]
  - MUSCLE SPASMS [None]
  - MYOCARDIAL INFARCTION [None]
  - PALPITATIONS [None]
  - VOMITING [None]
